FAERS Safety Report 4477889-3 (Version None)
Quarter: 2004Q4

REPORT INFORMATION
  Report Type: 
  Country: None (occurrence: None)
  Receive Date: 20041018
  Receipt Date: 20041009
  Transmission Date: 20050328
  Serious: Yes (Other)
  Sender: FDA-Public Use
  Company Number: DE-MERCK-0410DEU00305

PATIENT
  Sex: Female

DRUGS (5)
  1. HEPARIN [Concomitant]
     Route: 065
     Dates: start: 20031201, end: 20031201
  2. VIOXX [Suspect]
     Indication: PAIN PROPHYLAXIS
     Route: 048
     Dates: start: 20031201, end: 20031201
  3. VIOXX [Suspect]
     Route: 048
     Dates: start: 20041001, end: 20041001
  4. VIOXX [Suspect]
     Indication: OSTEOARTHRITIS
     Route: 048
     Dates: start: 20031201, end: 20031201
  5. VIOXX [Suspect]
     Route: 048
     Dates: start: 20041001, end: 20041001

REACTIONS (2)
  - ABDOMINAL PAIN [None]
  - DEEP VEIN THROMBOSIS [None]
